FAERS Safety Report 9778764 (Version 1)
Quarter: 2013Q4

REPORT INFORMATION
  Report Type: Spontaneous
  Country: LB (occurrence: LB)
  Receive Date: 20131223
  Receipt Date: 20131223
  Transmission Date: 20140711
  Serious: Yes (Hospitalization)
  Sender: FDA-Public Use
  Company Number: LB-MYLANLABS-2013S1028011

PATIENT
  Age: 5 Year
  Sex: Female
  Weight: 12.2 kg

DRUGS (7)
  1. METHOTREXATE [Suspect]
     Indication: B PRECURSOR TYPE ACUTE LEUKAEMIA
     Dosage: 12MG ON DAYS 1, 8 AND 22
     Route: 037
  2. PREDNISONE [Suspect]
     Indication: B PRECURSOR TYPE ACUTE LEUKAEMIA
     Dosage: 60 MG/M2/DAY ON DAYS 1-28
     Route: 048
  3. VINCRISTINE [Suspect]
     Indication: B PRECURSOR TYPE ACUTE LEUKAEMIA
     Dosage: 1.5 MG/M2 ON DAYS 8, 15, 22 AND 29
     Route: 042
  4. DAUNORUBICIN [Suspect]
     Indication: B PRECURSOR TYPE ACUTE LEUKAEMIA
     Dosage: 30 MG/M2 ON DAYS 8, 15, 22 AND 29
     Route: 042
  5. ASPARAGINASE [Suspect]
     Indication: B PRECURSOR TYPE ACUTE LEUKAEMIA
     Dosage: 10 000 U/M2 ON DAYS 12, 15, 18, 22, 25, 29, 32 AND 35
     Route: 030
  6. HYDROCORTISONE [Suspect]
     Indication: B PRECURSOR TYPE ACUTE LEUKAEMIA
     Dosage: 15MG ON DAYS 8, 22
     Route: 037
  7. CYTARABINE [Suspect]
     Indication: B PRECURSOR TYPE ACUTE LEUKAEMIA
     Dosage: 30MG ON DAYS 8, 22
     Route: 037

REACTIONS (5)
  - Stomatitis [Recovered/Resolved]
  - Tongue exfoliation [Recovering/Resolving]
  - Pyrexia [Unknown]
  - Candida infection [Unknown]
  - Staphylococcal infection [Unknown]
